FAERS Safety Report 13988672 (Version 1)
Quarter: 2017Q3

REPORT INFORMATION
  Report Type: Spontaneous
  Country: US (occurrence: US)
  Receive Date: 20170919
  Receipt Date: 20170919
  Transmission Date: 20171128
  Serious: No
  Sender: FDA-Public Use
  Company Number: US-AMNEAL PHARMACEUTICALS-2017AMN00597

PATIENT
  Sex: Female
  Weight: 106.58 kg

DRUGS (17)
  1. GABAPENTIN. [Suspect]
     Active Substance: GABAPENTIN
     Indication: CONNECTIVE TISSUE DISORDER
     Dosage: 300 MG, 6X/DAY
  2. LYRICA [Concomitant]
     Active Substance: PREGABALIN
     Dosage: UNK
     Dates: start: 2003
  3. PREDNISONE. [Concomitant]
     Active Substance: PREDNISONE
     Dosage: 5 MG, 1X/DAY
  4. EFFEXOR XR [Concomitant]
     Active Substance: VENLAFAXINE HYDROCHLORIDE
  5. VITAMIN D [Concomitant]
     Active Substance: CHOLECALCIFEROL
     Dosage: 50000 IU, 1X/WEEK
  6. ASPIRIN. [Concomitant]
     Active Substance: ASPIRIN
  7. PERCOCET [Concomitant]
     Active Substance: ACETAMINOPHEN\OXYCODONE HYDROCHLORIDE
  8. SYNTHROID [Concomitant]
     Active Substance: LEVOTHYROXINE SODIUM
     Dosage: 2 MCG, UNK (DAILY ONE TABLET EXCEPT ON WEDNESDAY)
  9. IMURAN [Concomitant]
     Active Substance: AZATHIOPRINE
     Dosage: 50 MG, 1X/DAY
  10. CALCIUM [Concomitant]
     Active Substance: CALCIUM
     Dosage: 500 MG, 6X/DAY
  11. PRILOSEC [Concomitant]
     Active Substance: OMEPRAZOLE MAGNESIUM
     Dosage: 20 MG, 2X/DAY
  12. MAGNESSIUM OXIDE [Concomitant]
     Dosage: 500 MG, 2X/DAY
  13. PHENOBARBITOL [Concomitant]
     Dosage: 100 MG, 1X/DAY
  14. CRESTOR [Concomitant]
     Active Substance: ROSUVASTATIN CALCIUM
     Dosage: 20 MG, 1X/DAY
  15. DIOVAN [Concomitant]
     Active Substance: VALSARTAN
  16. COREG [Concomitant]
     Active Substance: CARVEDILOL
  17. POTASSIUM CHLORIDE. [Concomitant]
     Active Substance: POTASSIUM CHLORIDE

REACTIONS (4)
  - Drug ineffective [Not Recovered/Not Resolved]
  - Condition aggravated [Unknown]
  - Product expiration date issue [Unknown]
  - Insomnia [Unknown]
